FAERS Safety Report 24342990 (Version 1)
Quarter: 2024Q3

REPORT INFORMATION
  Report Type: Spontaneous
  Country: US (occurrence: None)
  Receive Date: 20240919
  Receipt Date: 20240919
  Transmission Date: 20241017
  Serious: Yes (Hospitalization)
  Sender: Public
  Company Number: None

PATIENT
  Age: 74 Year
  Sex: Female

DRUGS (1)
  1. LENALIDOMIDE [Suspect]
     Active Substance: LENALIDOMIDE
     Indication: Plasma cell myeloma
     Dosage: OTHER FREQUENCY : 21DAYSON7DAYSOFF;?

REACTIONS (7)
  - Cerebrovascular accident [None]
  - Fall [None]
  - Rib fracture [None]
  - Eye injury [None]
  - Asthenia [None]
  - Pain [None]
  - Poor quality sleep [None]
